FAERS Safety Report 4711094-8 (Version None)
Quarter: 2005Q3

REPORT INFORMATION
  Report Type: 
  Country: None (occurrence: None)
  Receive Date: 20050707
  Receipt Date: 20050629
  Transmission Date: 20060218
  Serious: Yes (Other)
  Sender: FDA-Public Use
  Company Number: HQWYE821029JUN05

PATIENT
  Age: 36 Year
  Sex: Female

DRUGS (6)
  1. ARTANE [Suspect]
     Indication: CATAPLEXY
     Dosage: 6 MG 1X PER 1 DAY ORAL
     Route: 048
     Dates: start: 20050624, end: 20050626
  2. CHLORPROMAZINE HCL [Concomitant]
  3. DEPAS (ETIZOLAM) [Concomitant]
  4. ROHYPNOL (FLUNITRAZEPAM) [Concomitant]
  5. HALOPERIDOL [Concomitant]
  6. BIPERIDEN (BIPERIDEN) [Concomitant]

REACTIONS (4)
  - ALANINE AMINOTRANSFERASE INCREASED [None]
  - ASPARTATE AMINOTRANSFERASE INCREASED [None]
  - LIVER DISORDER [None]
  - PYREXIA [None]
